FAERS Safety Report 7560300-3 (Version None)
Quarter: 2011Q2

REPORT INFORMATION
  Report Type: 
  Country: None (occurrence: None)
  Receive Date: 20110621
  Receipt Date: 20110610
  Transmission Date: 20111010
  Serious: Yes (Hospitalization)
  Sender: FDA-Public Use
  Company Number: DE-US-EMD SERONO, INC.-7059809

PATIENT
  Sex: Male

DRUGS (1)
  1. REBIF [Suspect]
     Indication: MULTIPLE SCLEROSIS
     Dates: start: 20110414

REACTIONS (5)
  - CENTRAL NERVOUS SYSTEM LESION [None]
  - PAIN IN EXTREMITY [None]
  - OPTIC NEURITIS [None]
  - HERPES ZOSTER [None]
  - MULTIPLE SCLEROSIS RELAPSE [None]
